FAERS Safety Report 11287526 (Version 1)
Quarter: 2015Q3

REPORT INFORMATION
  Report Type: Spontaneous
  Country: US (occurrence: US)
  Receive Date: 20150721
  Receipt Date: 20150721
  Transmission Date: 20151125
  Serious: Yes (Death, Hospitalization)
  Sender: FDA-Public Use
  Company Number: US-JNJFOC-20150710926

PATIENT
  Age: 14 Year
  Sex: Male
  Weight: 32.21 kg

DRUGS (1)
  1. BENADRYL ALLERGY [Suspect]
     Active Substance: DIPHENHYDRAMINE HYDROCHLORIDE
     Indication: HYPERSENSITIVITY
     Dosage: 2 TABLESPOONS 1X POSSIBLY WITH A DROPPER
     Route: 048
     Dates: start: 20131001, end: 20131001

REACTIONS (7)
  - Drug ineffective for unapproved indication [Fatal]
  - Brain death [None]
  - Off label use [Fatal]
  - Cardiac arrest [None]
  - Anaphylactic reaction [Fatal]
  - Product label issue [Unknown]
  - Coma [None]

NARRATIVE: CASE EVENT DATE: 20131001
